FAERS Safety Report 7745179-9 (Version None)
Quarter: 2011Q3

REPORT INFORMATION
  Report Type: 
  Country: None (occurrence: None)
  Receive Date: 20110908
  Receipt Date: 20110825
  Transmission Date: 20111222
  Serious: Yes (Other)
  Sender: FDA-Public Use
  Company Number: US-2011-10622

PATIENT
  Age: 7 Year
  Sex: Male

DRUGS (10)
  1. ANTI-THYMOCYTE GLOBULIN RABBIT NOS [Concomitant]
  2. MYCOPHENOLATE MOFETIL [Concomitant]
  3. CLOFARABINE (CLOFARABINE) [Concomitant]
  4. TACROLIMUS [Concomitant]
  5. METRONIDAZOLE [Concomitant]
  6. LORAZEPAM [Concomitant]
  7. BUSULFEX [Suspect]
     Indication: STEM CELL TRANSPLANT
     Dosage: 0.5 MG/KG, DAILY DOSE, INTRAVENOUS   4.8 MG/KG, DAILY DOSE, INTRAVENOUS   5000 1/4MOL MICROMOLE(S),
     Route: 042
  8. BUSULFEX [Suspect]
     Indication: STEM CELL TRANSPLANT
     Dosage: 0.5 MG/KG, DAILY DOSE, INTRAVENOUS   4.8 MG/KG, DAILY DOSE, INTRAVENOUS   5000 1/4MOL MICROMOLE(S),
     Route: 042
  9. BUSULFEX [Suspect]
     Indication: STEM CELL TRANSPLANT
     Dosage: 0.5 MG/KG, DAILY DOSE, INTRAVENOUS   4.8 MG/KG, DAILY DOSE, INTRAVENOUS   5000 1/4MOL MICROMOLE(S),
     Route: 042
  10. THIOTEPA [Concomitant]

REACTIONS (3)
  - DRUG CLEARANCE DECREASED [None]
  - ALANINE AMINOTRANSFERASE INCREASED [None]
  - DRUG INTERACTION [None]
